FAERS Safety Report 5813279-6 (Version None)
Quarter: 2008Q3

REPORT INFORMATION
  Report Type: 
  Country: None (occurrence: None)
  Receive Date: 20080717
  Receipt Date: 20080708
  Transmission Date: 20090109
  Serious: Yes (Other)
  Sender: FDA-Public Use
  Company Number: US-JNJFOC-20080703957

PATIENT
  Sex: Female

DRUGS (1)
  1. RENOVA [Suspect]
     Indication: DRUG USE FOR UNKNOWN INDICATION
     Route: 065

REACTIONS (2)
  - DERMATITIS ALLERGIC [None]
  - LEUKOCYTOCLASTIC VASCULITIS [None]
